FAERS Safety Report 23203774 (Version 2)
Quarter: 2024Q1

REPORT INFORMATION
  Report Type: Report from Study
  Country: US (occurrence: US)
  Receive Date: 20231120
  Receipt Date: 20240116
  Transmission Date: 20240409
  Serious: Yes (Hospitalization, Other)
  Sender: FDA-Public Use
  Company Number: US-ABBVIE-5493619

PATIENT
  Sex: Male

DRUGS (2)
  1. RINVOQ [Suspect]
     Active Substance: UPADACITINIB
     Indication: Crohn^s disease
     Route: 048
     Dates: start: 20230810
  2. RINVOQ [Suspect]
     Active Substance: UPADACITINIB
     Indication: Crohn^s disease
     Route: 048
     Dates: start: 2023

REACTIONS (7)
  - Fistula [Recovering/Resolving]
  - Intestinal operation [Recovered/Resolved]
  - Abscess [Recovering/Resolving]
  - Malnutrition [Unknown]
  - Small intestinal resection [Unknown]
  - Colectomy [Unknown]
  - Abscess [Unknown]

NARRATIVE: CASE EVENT DATE: 20230101
